FAERS Safety Report 25722187 (Version 1)
Quarter: 2025Q3

REPORT INFORMATION
  Report Type: Other
  Country: CA (occurrence: CA)
  Receive Date: 20250825
  Receipt Date: 20250825
  Transmission Date: 20251021
  Serious: Yes (Other)
  Sender: APOTEX
  Company Number: CA-PGRTD-E2B_07904533

PATIENT
  Age: 52 Year
  Sex: Male

DRUGS (23)
  1. GEMCITABINE [Suspect]
     Active Substance: GEMCITABINE
     Indication: Pancreatic carcinoma metastatic
     Route: 065
  2. CAPECITABINE [Suspect]
     Active Substance: CAPECITABINE
     Indication: Pancreatic carcinoma metastatic
     Route: 065
  3. PEMETREXED [Suspect]
     Active Substance: PEMETREXED
     Indication: Pancreatic carcinoma metastatic
     Route: 065
  4. DOCETAXEL [Suspect]
     Active Substance: DOCETAXEL
     Indication: Product used for unknown indication
     Route: 065
  5. KEYTRUDA [Suspect]
     Active Substance: PEMBROLIZUMAB
     Indication: Pancreatic carcinoma metastatic
     Route: 065
  6. LORBRENA [Suspect]
     Active Substance: LORLATINIB
     Indication: Pancreatic carcinoma metastatic
     Route: 065
  7. OXALIPLATIN [Suspect]
     Active Substance: OXALIPLATIN
     Indication: Pancreatic carcinoma metastatic
     Route: 065
  8. TRASTUZUMAB [Suspect]
     Active Substance: TRASTUZUMAB
     Indication: Pancreatic carcinoma metastatic
     Route: 065
  9. BEVACIZUMAB [Concomitant]
     Active Substance: BEVACIZUMAB
     Route: 042
  10. PACLITAXEL [Concomitant]
     Active Substance: PACLITAXEL
     Route: 065
  11. ALUNBRIG [Concomitant]
     Active Substance: BRIGATINIB
     Route: 065
  12. AMILOMER [Concomitant]
     Active Substance: AMILOMER
     Route: 065
  13. CISPLATIN [Concomitant]
     Active Substance: CISPLATIN
     Route: 042
  14. DEMCIZUMAB [Concomitant]
     Active Substance: DEMCIZUMAB
     Route: 065
  15. ENTRECTINIB [Concomitant]
     Active Substance: ENTRECTINIB
     Route: 065
  16. ETHIODIZED OIL [Concomitant]
     Active Substance: ETHIODIZED OIL
     Route: 065
  17. FLUOROURACIL [Concomitant]
     Active Substance: FLUOROURACIL
     Route: 065
  18. LEUCOVORIN [Concomitant]
     Active Substance: LEUCOVORIN\LEUCOVORIN CALCIUM
     Route: 065
  19. IRINOTECAN HYDROCHLORIDE [Concomitant]
     Active Substance: IRINOTECAN HYDROCHLORIDE
     Route: 065
  20. MITOMYCIN [Concomitant]
     Active Substance: MITOMYCIN
     Route: 065
  21. OSIMERTINIB [Concomitant]
     Active Substance: OSIMERTINIB
     Route: 065
  22. PERTUZUMAB [Concomitant]
     Active Substance: PERTUZUMAB
     Route: 065
  23. TRASTUZUMAB DERUXTECAN [Concomitant]
     Active Substance: TRASTUZUMAB DERUXTECAN
     Route: 065

REACTIONS (2)
  - Pancytopenia [Unknown]
  - Off label use [Unknown]
